FAERS Safety Report 15689252 (Version 2)
Quarter: 2019Q1

REPORT INFORMATION
  Report Type: Spontaneous
  Country: US (occurrence: US)
  Receive Date: 20181205
  Receipt Date: 20190107
  Transmission Date: 20190417
  Serious: No
  Sender: FDA-Public Use
  Company Number: PHEH2018US050326

PATIENT
  Age: 72 Year
  Sex: Female

DRUGS (4)
  1. KETOCONAZOLE. [Suspect]
     Active Substance: KETOCONAZOLE
     Indication: ONYCHOMYCOSIS
     Dosage: UNK
     Route: 065
  2. CICLOPIROX. [Suspect]
     Active Substance: CICLOPIROX
     Indication: ONYCHOMYCOSIS
     Dosage: UNK
     Route: 065
  3. KERYDIN [Suspect]
     Active Substance: TAVABOROLE
     Indication: ONYCHOMYCOSIS
     Dosage: UNK
     Route: 061
     Dates: start: 201811
  4. KERYDIN [Suspect]
     Active Substance: TAVABOROLE
     Dosage: UNK
     Route: 047
     Dates: start: 201812

REACTIONS (3)
  - Drug resistance [Recovering/Resolving]
  - Eye irritation [Recovered/Resolved]
  - Incorrect route of product administration [Unknown]

NARRATIVE: CASE EVENT DATE: 201812
